FAERS Safety Report 9293603 (Version 1)
Quarter: 2013Q2

REPORT INFORMATION
  Report Type: Spontaneous
  Country: US (occurrence: US)
  Receive Date: 20130516
  Receipt Date: 20130516
  Transmission Date: 20140414
  Serious: Yes (Other)
  Sender: FDA-Public Use
  Company Number: US-ASTRAZENECA-2013SE33582

PATIENT
  Age: 65 Year
  Sex: Male
  Weight: 108.9 kg

DRUGS (4)
  1. METOPROLOL TARTRATE [Suspect]
     Route: 065
  2. CRESTOR [Suspect]
     Route: 048
  3. GLYBURIDE [Concomitant]
  4. TERAZOSIN HCL [Concomitant]

REACTIONS (1)
  - Amnesia [Unknown]
